FAERS Safety Report 8394717-4 (Version None)
Quarter: 2012Q2

REPORT INFORMATION
  Report Type: 
  Country: None (occurrence: None)
  Receive Date: 20120530
  Receipt Date: 20120528
  Transmission Date: 20120825
  Serious: Yes (Death)
  Sender: FDA-Public Use
  Company Number: EC-MPIJNJ-2012-03780

PATIENT

DRUGS (2)
  1. VELCADE [Suspect]
     Indication: PRODUCT USED FOR UNKNOWN INDICATION
     Dosage: 1.5 MG, UNK
     Route: 042
  2. THALIDOMIDE [Concomitant]

REACTIONS (1)
  - DEATH [None]
